FAERS Safety Report 25280726 (Version 2)
Quarter: 2025Q2

REPORT INFORMATION
  Report Type: Spontaneous
  Country: CA (occurrence: CA)
  Receive Date: 20250508
  Receipt Date: 20250527
  Transmission Date: 20250716
  Serious: No
  Sender: BEIGENE
  Company Number: CA-BEIGENE-BGN-2025-007078

PATIENT
  Age: 86 Year

DRUGS (1)
  1. BRUKINSA [Suspect]
     Active Substance: ZANUBRUTINIB
     Indication: B-cell small lymphocytic lymphoma
     Dosage: 160 MILLIGRAM, BID

REACTIONS (1)
  - Dysphagia [Unknown]
